FAERS Safety Report 8577284 (Version 4)
Quarter: 2013Q1

REPORT INFORMATION
  Report Type: Spontaneous
  Country: TR (occurrence: TR)
  Receive Date: 20120524
  Receipt Date: 20130128
  Transmission Date: 20140127
  Serious: Yes (Hospitalization, Other)
  Sender: FDA-Public Use
  Company Number: TR-ELI_LILLY_AND_COMPANY-TR201205007514

PATIENT
  Age: 19 Year
  Sex: Female

DRUGS (3)
  1. HUMULIN REGULAR [Suspect]
     Dosage: 14 IU, TID
     Route: 058
     Dates: start: 20120508
  2. HUMULIN NPH [Suspect]
     Dosage: 20 IU QD
     Route: 058
     Dates: start: 20120508
  3. HUMULIN NPH [Suspect]
     Dosage: 14 IU, BID
     Dates: start: 20120515

REACTIONS (3)
  - Abortion spontaneous [Recovered/Resolved]
  - Haemorrhage [Recovered/Resolved]
  - Exposure during pregnancy [Recovered/Resolved]
